FAERS Safety Report 10163054 (Version 1)
Quarter: 2014Q2

REPORT INFORMATION
  Report Type: Spontaneous
  Country: US (occurrence: US)
  Receive Date: 20140509
  Receipt Date: 20140509
  Transmission Date: 20141212
  Serious: No
  Sender: FDA-Public Use
  Company Number: US-PFIZER INC-2014123591

PATIENT
  Age: 51 Year
  Sex: Female

DRUGS (5)
  1. EFFEXOR [Suspect]
     Dosage: UNK
  2. GABAPENTIN [Suspect]
     Dosage: UNK
  3. OXYCODONE [Suspect]
     Dosage: UNK
  4. TAPAZOLE [Suspect]
     Dosage: UNK
  5. NORTRIPTYLINE [Suspect]
     Dosage: UNK

REACTIONS (1)
  - Drug hypersensitivity [Unknown]
